FAERS Safety Report 5505070-5 (Version None)
Quarter: 2007Q4

REPORT INFORMATION
  Report Type: 
  Country: None (occurrence: None)
  Receive Date: 20071031
  Receipt Date: 20071031
  Transmission Date: 20080405
  Serious: No
  Sender: FDA-Public Use
  Company Number: None

PATIENT
  Age: 27 Year
  Sex: Female
  Weight: 63.5036 kg

DRUGS (1)
  1. CHANTIX [Suspect]
     Indication: SMOKING CESSATION THERAPY
     Dosage: 1 MG   2 TIMES DAILY  PO
     Route: 048
     Dates: start: 20070706, end: 20070715

REACTIONS (4)
  - ANOREXIA [None]
  - DYSPEPSIA [None]
  - MALAISE [None]
  - NAUSEA [None]
